FAERS Safety Report 22319440 (Version 1)
Quarter: 2023Q2

REPORT INFORMATION
  Report Type: Spontaneous
  Country: US (occurrence: US)
  Receive Date: 20230515
  Receipt Date: 20230515
  Transmission Date: 20230721
  Serious: No
  Sender: FDA-Public Use
  Company Number: US-AMGEN-USASP2023082768

PATIENT

DRUGS (1)
  1. KANJINTI [Suspect]
     Active Substance: TRASTUZUMAB-ANNS
     Indication: Product used for unknown indication
     Dosage: IV BAG DILUTION FROM SINGLE-DOSE VIAL
     Route: 042

REACTIONS (2)
  - Product storage error [Unknown]
  - Intercepted product administration error [Unknown]
